FAERS Safety Report 9783206 (Version 1)
Quarter: 2013Q4

REPORT INFORMATION
  Report Type: Spontaneous
  Country: TR (occurrence: TR)
  Receive Date: 20131226
  Receipt Date: 20131226
  Transmission Date: 20140711
  Serious: Yes (Hospitalization)
  Sender: FDA-Public Use
  Company Number: PHHY2013TR147737

PATIENT
  Age: 35 Year
  Sex: Female

DRUGS (3)
  1. RIFAMPICIN [Suspect]
     Indication: BRUCELLOSIS
     Dosage: 600 MG, UNK
  2. DOXYCYCLINE [Concomitant]
     Indication: BRUCELLOSIS
     Dosage: 200 MG, UNK
  3. CIPROFLOXACIN [Concomitant]
     Indication: BRUCELLOSIS

REACTIONS (5)
  - Epistaxis [Unknown]
  - Thrombocytopenia [Recovered/Resolved]
  - Rash generalised [Unknown]
  - Ecchymosis [Unknown]
  - Petechiae [Unknown]
